FAERS Safety Report 6961279-5 (Version None)
Quarter: 2010Q3

REPORT INFORMATION
  Report Type: 
  Country: None (occurrence: None)
  Receive Date: 20100901
  Receipt Date: 20100831
  Transmission Date: 20110219
  Serious: Yes (Death, Hospitalization)
  Sender: FDA-Public Use
  Company Number: A0876794A

PATIENT
  Age: 71 Year
  Sex: Male
  Weight: 81.4 kg

DRUGS (1)
  1. PROMACTA [Suspect]
     Indication: PRODUCT USED FOR UNKNOWN INDICATION
     Route: 048

REACTIONS (2)
  - LYMPHOMA [None]
  - WALDENSTROM'S MACROGLOBULINAEMIA [None]
